FAERS Safety Report 10168203 (Version 1)
Quarter: 2014Q2

REPORT INFORMATION
  Report Type: Spontaneous
  Country: US (occurrence: US)
  Receive Date: 20140512
  Receipt Date: 20140512
  Transmission Date: 20141212
  Serious: No
  Sender: FDA-Public Use
  Company Number: US-ASTRAZENECA-2013SE79298

PATIENT
  Age: 83 Year
  Sex: Female
  Weight: 56.2 kg

DRUGS (2)
  1. FASLODEX [Suspect]
     Indication: BREAST CANCER
     Route: 030
     Dates: start: 201304
  2. AROMASIN [Concomitant]
     Indication: BREAST CANCER
     Dates: start: 201304

REACTIONS (3)
  - Menopausal symptoms [Unknown]
  - Postmenopausal haemorrhage [Unknown]
  - Injection site pain [Unknown]
